FAERS Safety Report 20616566 (Version 2)
Quarter: 2022Q2

REPORT INFORMATION
  Report Type: Spontaneous
  Country: CA (occurrence: CA)
  Receive Date: 20220321
  Receipt Date: 20220615
  Transmission Date: 20220721
  Serious: Yes (Death, Hospitalization, Other)
  Sender: FDA-Public Use
  Company Number: CA-PFIZER INC-202200426176

PATIENT
  Age: 59 Year
  Sex: Female

DRUGS (1)
  1. IBRANCE [Suspect]
     Active Substance: PALBOCICLIB
     Indication: Breast cancer metastatic
     Dosage: 125 MG, 1X/DAY X21 DAYS REPEAT Q 28 DAYS
     Dates: start: 20180214, end: 202104

REACTIONS (4)
  - Respiratory distress [Fatal]
  - Arrhythmia [Fatal]
  - Infection [Fatal]
  - Sepsis [Fatal]

NARRATIVE: CASE EVENT DATE: 20210901
